FAERS Safety Report 14570730 (Version 2)
Quarter: 2018Q1

REPORT INFORMATION
  Report Type: Report from Study
  Country: IT (occurrence: IT)
  Receive Date: 20180226
  Receipt Date: 20180328
  Transmission Date: 20180509
  Serious: Yes (Life-Threatening)
  Sender: FDA-Public Use
  Company Number: IT-ACCORD-063895

PATIENT
  Age: 63 Year
  Sex: Female

DRUGS (6)
  1. VALPRESSION [Concomitant]
     Active Substance: VALSARTAN
  2. OMEPRAZOLE. [Concomitant]
     Active Substance: OMEPRAZOLE
  3. HERCEPTIN [Suspect]
     Active Substance: TRASTUZUMAB
     Indication: BREAST CANCER
     Dosage: STRENGTH: 600 MG/5 ML?IN VIAL
     Dates: start: 20161108, end: 20170922
  4. ANASTROZOLE. [Suspect]
     Active Substance: ANASTROZOLE
     Indication: BREAST CANCER
     Dates: start: 20170201, end: 20170930
  5. ATENOLOL/ATENOLOL HYDROCHLORIDE [Concomitant]
  6. COUMADIN [Concomitant]
     Active Substance: WARFARIN SODIUM
     Dosage: STRENGTH:  5 MG

REACTIONS (3)
  - Cardiac arrest [Recovered/Resolved with Sequelae]
  - Atrial fibrillation [Recovered/Resolved with Sequelae]
  - Venous thrombosis [Recovered/Resolved with Sequelae]

NARRATIVE: CASE EVENT DATE: 20170923
